FAERS Safety Report 7831646-6 (Version None)
Quarter: 2011Q4

REPORT INFORMATION
  Report Type: 
  Country: None (occurrence: None)
  Receive Date: 20111021
  Receipt Date: 20110928
  Transmission Date: 20120403
  Serious: Yes (Hospitalization)
  Sender: FDA-Public Use
  Company Number: DE-ROCHE-802220

PATIENT
  Sex: Female
  Weight: 65 kg

DRUGS (10)
  1. MIRTAZAPINE [Concomitant]
  2. DOXORUBICIN HCL [Suspect]
     Indication: LYMPHOMA
     Dosage: LAST DOSE PRIOR TO SAE: 02 SEP 2011
     Route: 042
  3. VINCRISTINE [Suspect]
     Indication: LYMPHOMA
     Dosage: LAST DOSE PRIOR TO SAE: 02 SEP 2011
     Route: 042
  4. COLESTYRAMIN [Concomitant]
  5. MABTHERA [Suspect]
     Indication: LYMPHOMA
     Dosage: LAST DOSE PRIOR TO SAE: 03 SEP 2011
     Route: 042
  6. SEROQUEL [Concomitant]
  7. CYCLOPHOSPHAMIDE [Suspect]
     Indication: LYMPHOMA
     Dosage: LAST DOSE PRIOR TO SAE: 02 SEP 2011
     Route: 042
  8. PREDNISONE [Suspect]
     Indication: LYMPHOMA
     Dosage: D1-5:100 MG, D6:50 MG, D7:25 MG, D8:17.5 MG, LAST DOSE PRIOR TO SAE: 08 SEP 2011
     Route: 048
  9. BISOPROLOL FUMARATE [Concomitant]
  10. DIAZEPAM [Concomitant]

REACTIONS (7)
  - HYPONATRAEMIA [None]
  - HYPOKALAEMIA [None]
  - DIARRHOEA [None]
  - NAUSEA [None]
  - LEUKOPENIA [None]
  - SYNCOPE [None]
  - VOMITING [None]
